FAERS Safety Report 19657424 (Version 2)
Quarter: 2021Q3

REPORT INFORMATION
  Report Type: Spontaneous
  Country: BE (occurrence: BE)
  Receive Date: 20210804
  Receipt Date: 20210812
  Transmission Date: 20211014
  Serious: Yes (Death, Other)
  Sender: FDA-Public Use
  Company Number: BE-GILEAD-2021-0542814

PATIENT
  Age: 52 Year
  Sex: Male
  Weight: 67 kg

DRUGS (4)
  1. DIFLUCAN [Suspect]
     Active Substance: FLUCONAZOLE
     Indication: PRODUCT USED FOR UNKNOWN INDICATION
     Dosage: 100 MG, QD
     Route: 065
  2. COMIRNATY [Suspect]
     Active Substance: TOZINAMERAN
     Indication: COVID-19 IMMUNISATION
     Dosage: FIRST DOSE ADMINISTERED
     Route: 065
     Dates: start: 20210605
  3. BIKTARVY [Suspect]
     Active Substance: BICTEGRAVIR SODIUM\EMTRICITABINE\TENOFOVIR ALAFENAMIDE FUMARATE
     Indication: HIV INFECTION
     Dosage: 1 DOSAGE FORM, QD
     Route: 065
  4. EUSAPRIM [Suspect]
     Active Substance: SULFAMETHOXAZOLE\TRIMETHOPRIM
     Indication: PRODUCT USED FOR UNKNOWN INDICATION
     Dosage: 0.5 DOSAGE FORM, QD
     Route: 065

REACTIONS (7)
  - Death [Fatal]
  - Coagulopathy [Fatal]
  - Pericardial haemorrhage [Fatal]
  - Thrombocytopenia [Fatal]
  - ADAMTS13 activity decreased [Fatal]
  - Autoimmune disorder [Fatal]
  - Thrombotic thrombocytopenic purpura [Fatal]

NARRATIVE: CASE EVENT DATE: 20210618
